FAERS Safety Report 5907156-X (Version None)
Quarter: 2008Q4

REPORT INFORMATION
  Report Type: 
  Country: None (occurrence: None)
  Receive Date: 20081003
  Receipt Date: 20080911
  Transmission Date: 20090506
  Serious: No
  Sender: FDA-Public Use
  Company Number: US-BAYER-200833657NA

PATIENT
  Age: 41 Year
  Sex: Female
  Weight: 73 kg

DRUGS (1)
  1. MAGNEVIST [Suspect]
     Indication: ANGIOPATHY
     Dosage: AS USED: 60 ML  UNIT DOSE: 20 ML
     Route: 042
     Dates: start: 20080904, end: 20080904

REACTIONS (1)
  - URTICARIA [None]
